FAERS Safety Report 18374214 (Version 4)
Quarter: 2022Q4

REPORT INFORMATION
  Report Type: Report from Study
  Country: CA (occurrence: CA)
  Receive Date: 20201013
  Receipt Date: 20221011
  Transmission Date: 20230113
  Serious: Yes (Other)
  Sender: FDA-Public Use
  Company Number: CA-ABBVIE-20K-028-3599408-00

PATIENT
  Sex: Male

DRUGS (1)
  1. HUMIRA [Suspect]
     Active Substance: ADALIMUMAB
     Indication: Crohn^s disease
     Route: 058
     Dates: start: 20190702

REACTIONS (13)
  - Obstruction [Not Recovered/Not Resolved]
  - Arthralgia [Unknown]
  - Limb mass [Not Recovered/Not Resolved]
  - Nerve injury [Unknown]
  - Abdominal pain upper [Not Recovered/Not Resolved]
  - Asthenopia [Not Recovered/Not Resolved]
  - Rash macular [Recovered/Resolved]
  - Vomiting [Not Recovered/Not Resolved]
  - Arthropathy [Unknown]
  - Dry eye [Unknown]
  - Dehydration [Unknown]
  - Injection site pain [Unknown]
  - Dry mouth [Unknown]

NARRATIVE: CASE EVENT DATE: 20190101
